FAERS Safety Report 19504813 (Version 1)
Quarter: 2021Q3

REPORT INFORMATION
  Report Type: Spontaneous
  Country: IR (occurrence: IR)
  Receive Date: 20210707
  Receipt Date: 20210707
  Transmission Date: 20211014
  Serious: Yes (Other)
  Sender: FDA-Public Use
  Company Number: IR-SA-2021SA219676

PATIENT
  Age: 58 Year
  Sex: Male
  Weight: 49 kg

DRUGS (3)
  1. SANKOL [Concomitant]
     Dosage: UNK
     Dates: start: 20210622
  2. OMNIC [Suspect]
     Active Substance: TAMSULOSIN HYDROCHLORIDE
     Indication: NEPHROLITHIASIS
     Dosage: 0.4 MG, QD (0.4 MG, ONCE DAILY)
     Route: 048
     Dates: start: 20210619, end: 20210625
  3. CYSTONE [ACHYRANTHES ASPERA;CALCIUM SILICATE;CYPERUS SCARIOSUS;DIDYMOC [Concomitant]
     Dosage: UNKNOWN
     Dates: start: 20210622

REACTIONS (5)
  - Product use in unapproved indication [Unknown]
  - Epistaxis [Recovered/Resolved]
  - Hypotension [Recovering/Resolving]
  - Lethargy [Recovering/Resolving]
  - Faeces discoloured [Recovering/Resolving]

NARRATIVE: CASE EVENT DATE: 20210619
